FAERS Safety Report 20621539 (Version 1)
Quarter: 2022Q1

REPORT INFORMATION
  Report Type: Spontaneous
  Country: US (occurrence: US)
  Receive Date: 20220322
  Receipt Date: 20220322
  Transmission Date: 20220423
  Serious: No
  Sender: FDA-Public Use
  Company Number: US-ALLERGAN-2127441US

PATIENT
  Age: 68 Year
  Sex: Female
  Weight: 53.515 kg

DRUGS (13)
  1. LUMIGAN [Suspect]
     Active Substance: BIMATOPROST
     Indication: Intraocular pressure increased
     Dosage: 2 GTT, QPM
     Route: 047
     Dates: start: 20210715, end: 20210723
  2. LUMIGAN [Suspect]
     Active Substance: BIMATOPROST
     Indication: Glaucoma
  3. SYSTANE COMPLETE [Suspect]
     Active Substance: PROPYLENE GLYCOL
     Indication: Product used for unknown indication
  4. HYDROCHLOROTHIAZIDE [Concomitant]
     Active Substance: HYDROCHLOROTHIAZIDE
     Indication: Essential hypertension
     Dosage: 1 DF, QD
     Dates: start: 2005
  5. AMLODIPINE BESYLATE [Concomitant]
     Active Substance: AMLODIPINE BESYLATE
     Indication: Hypertension
     Dosage: 1 DF, QD
     Dates: start: 2014
  6. LOVASTATIN [Concomitant]
     Active Substance: LOVASTATIN
     Indication: Hyperlipidaemia
     Dosage: 1 DF, QPM
     Dates: start: 2005
  7. PresersVision OTC [Concomitant]
     Indication: Glaucoma
     Dosage: 1 DF, QD
  8. TRIAMCINOLONE [Concomitant]
     Active Substance: TRIAMCINOLONE
     Indication: Bite
     Dosage: UNK, PRN
     Route: 061
  9. TRIAMCINOLONE [Concomitant]
     Active Substance: TRIAMCINOLONE
     Indication: Allergy to arthropod sting
  10. MAGNESIUM CHLORIDE [Concomitant]
     Active Substance: MAGNESIUM CHLORIDE
     Indication: Adverse reaction
     Dosage: 1 DF, QD
     Dates: start: 2014
  11. VITAMIN D NOS [Concomitant]
     Active Substance: VITAMIN D NOS
     Indication: Vitamin D deficiency
     Dosage: 1 DF, QD
     Dates: start: 2015
  12. PREMARIN [Concomitant]
     Active Substance: ESTROGENS, CONJUGATED
     Indication: Vulvovaginal dryness
     Dosage: 3X/WEEK
     Route: 061
  13. CLINDAMYCIN HYDROCHLORIDE [Concomitant]
     Active Substance: CLINDAMYCIN HYDROCHLORIDE
     Indication: Hip arthroplasty
     Dosage: 4 BEFORE DENTAL PROCEDURE
     Dates: start: 2012

REACTIONS (6)
  - Hypersensitivity [Recovering/Resolving]
  - Eye inflammation [Recovering/Resolving]
  - Eye swelling [Recovering/Resolving]
  - Eye irritation [Recovered/Resolved]
  - Dry eye [Recovering/Resolving]
  - Intraocular pressure increased [Recovering/Resolving]

NARRATIVE: CASE EVENT DATE: 20210701
